FAERS Safety Report 22631416 (Version 1)
Quarter: 2023Q2

REPORT INFORMATION
  Report Type: Report from Study
  Country: US (occurrence: US)
  Receive Date: 20230623
  Receipt Date: 20230623
  Transmission Date: 20230722
  Serious: Yes (Hospitalization)
  Sender: FDA-Public Use
  Company Number: US-002147023-NVSC2023US086823

PATIENT
  Age: 64 Year
  Sex: Male
  Weight: 117.9 kg

DRUGS (15)
  1. PLUVICTO [Suspect]
     Active Substance: LUTETIUM LU-177 VIPIVOTIDE TETRAXETAN
     Indication: Hormone-dependent prostate cancer
     Dosage: 200.06 MCI, ONCE/SINGLE
     Route: 042
     Dates: start: 20221020
  2. LOCAMETZ [Suspect]
     Active Substance: PSMA-HBED-CC
     Indication: Hormone-dependent prostate cancer
     Dosage: 3.6 MCI, ONCE/SINGLE
     Route: 042
     Dates: start: 20220927
  3. FENOFIBRATE [Concomitant]
     Active Substance: FENOFIBRATE
     Indication: Hyperlipidaemia
     Dosage: UNK
     Route: 065
     Dates: start: 20220722
  4. LEVOTHYROXINE [Concomitant]
     Active Substance: LEVOTHYROXINE
     Indication: Hypothyroidism
     Dosage: UNK
     Route: 065
     Dates: start: 20220722
  5. APALUTAMIDE [Concomitant]
     Active Substance: APALUTAMIDE
     Indication: Product used for unknown indication
     Dosage: 240 MG, ONCE
     Route: 065
     Dates: start: 20220923
  6. LEUPROLIDE [Concomitant]
     Active Substance: LEUPROLIDE
     Indication: Product used for unknown indication
     Dosage: 22.5 MG, EVERY 12 WEEKS
     Route: 065
     Dates: start: 20220923
  7. VITAMIN D [Concomitant]
     Active Substance: VITAMIN D NOS
     Indication: General physical condition
     Dosage: UNK
     Route: 065
     Dates: start: 20220923
  8. ONDANSETRON [Concomitant]
     Active Substance: ONDANSETRON
     Indication: Nausea
     Dosage: UNK
     Route: 065
     Dates: start: 20221020
  9. SILDENAFIL [Concomitant]
     Active Substance: SILDENAFIL
     Indication: Erectile dysfunction
     Dosage: UNK
     Route: 065
     Dates: start: 20221207
  10. ALBUTEROL [Concomitant]
     Active Substance: ALBUTEROL
     Indication: Cough
     Dosage: UNK
     Route: 065
     Dates: start: 20230324
  11. ALBUTEROL [Concomitant]
     Active Substance: ALBUTEROL
     Indication: Productive cough
  12. FORMOTEROL [Concomitant]
     Active Substance: FORMOTEROL
     Indication: Cough
     Dosage: UNK
     Route: 065
     Dates: start: 20230324
  13. FORMOTEROL [Concomitant]
     Active Substance: FORMOTEROL
     Indication: Productive cough
  14. PREDNISONE [Concomitant]
     Active Substance: PREDNISONE
     Indication: Cough
     Dosage: UNK
     Route: 065
     Dates: start: 20230324
  15. PREDNISONE [Concomitant]
     Active Substance: PREDNISONE
     Indication: Productive cough

REACTIONS (1)
  - Influenza like illness [Not Recovered/Not Resolved]

NARRATIVE: CASE EVENT DATE: 20230413
